FAERS Safety Report 7296600-4 (Version None)
Quarter: 2011Q1

REPORT INFORMATION
  Report Type: 
  Country: None (occurrence: None)
  Receive Date: 20110216
  Receipt Date: 20110207
  Transmission Date: 20110831
  Serious: Yes (Hospitalization)
  Sender: FDA-Public Use
  Company Number: PHHY2011TW09541

PATIENT
  Age: 31 Year
  Sex: Female

DRUGS (3)
  1. VASOPRESSIN INJECTION [Concomitant]
     Route: 015
  2. OXYTOCIN [Suspect]
     Route: 015
  3. METHYLERGONOVINE MALEATE [Suspect]
     Route: 030

REACTIONS (2)
  - UTERINE HAEMORRHAGE [None]
  - PLACENTA ACCRETA [None]
